FAERS Safety Report 9165277 (Version 1)
Quarter: 2013Q1

REPORT INFORMATION
  Report Type: Spontaneous
  Country: JP (occurrence: None)
  Receive Date: 20130301
  Receipt Date: 20130301
  Transmission Date: 20140127
  Serious: Yes (Hospitalization)
  Sender: FDA-Public Use
  Company Number: TCI2013A00193

PATIENT
  Age: 67 Year
  Sex: Male

DRUGS (16)
  1. TAKEPRON OD TABLETS 15 (LANSOPRAZOLE) [Suspect]
     Indication: GASTROOESOPHAGEAL REFLUX DISEASE
     Route: 048
     Dates: start: 20120621
  2. TAKEPRON OD TABLETS 15 (LANSOPRAZOLE) [Suspect]
     Indication: PROPHYLAXIS AGAINST GASTROINTESTINAL ULCER
     Route: 048
     Dates: start: 20120621
  3. LOXONIN (LOXOPROFEN SODIUM) [Concomitant]
  4. MUCOSTA (REBAMIPIDE) [Concomitant]
  5. BAKTAR (SULFAMETHOXAZOLE, TRIMETHOPRIM) [Concomitant]
  6. ZOVIRAX (ACICLOVIR) [Concomitant]
  7. URSO (URSOBOXYCHOLIC ACID) [Concomitant]
  8. GLYCYRON (GLYCINE, DL-METHIONINE, GLYCYRRHICIC ACID) [Concomitant]
  9. EDIROL (ELDECALCITOL)(VITAMIN D AND ANALOGUES) [Concomitant]
  10. ASPARA-CA (ASPARTATE CALCIUM) [Concomitant]
  11. REVLIMID (LENALIDOMIDE) [Concomitant]
  12. LENADEX (DEXAMETHASONE) [Concomitant]
  13. BORTEZOMIB [Concomitant]
  14. MELPHALAN [Concomitant]
  15. PREDNISOLONE [Concomitant]
  16. ZOMETA (ZOLEDRONIC ACID) [Concomitant]

REACTIONS (1)
  - Electrocardiogram QT prolonged [None]
